FAERS Safety Report 20424551 (Version 1)
Quarter: 2022Q1

REPORT INFORMATION
  Report Type: Report from Study
  Country: US (occurrence: US)
  Receive Date: 20220203
  Receipt Date: 20220203
  Transmission Date: 20220423
  Serious: Yes (Hospitalization)
  Sender: FDA-Public Use
  Company Number: US-EXELIXIS-CABO-21042637

PATIENT
  Age: 62 Year
  Sex: Male
  Weight: 97.506 kg

DRUGS (13)
  1. CABOMETYX [Suspect]
     Active Substance: CABOZANTINIB S-MALATE
     Indication: Renal cancer
     Dosage: 40 MG, QD
     Route: 048
  2. CABOMETYX [Suspect]
     Active Substance: CABOZANTINIB S-MALATE
     Dosage: 20 MG, QD
     Route: 048
     Dates: start: 202101, end: 20210710
  3. SYNTHROID [Concomitant]
     Active Substance: LEVOTHYROXINE SODIUM
     Dosage: UNK
  4. LEVOTHYROXINE SODIUM [Concomitant]
     Active Substance: LEVOTHYROXINE SODIUM
     Dosage: UNK
  5. DIFICID [Concomitant]
     Active Substance: FIDAXOMICIN
     Dosage: UNK
  6. METRONIDAZOLE [Concomitant]
     Active Substance: METRONIDAZOLE
     Dosage: UNK
  7. GLIPIZIDE [Concomitant]
     Active Substance: GLIPIZIDE
     Dosage: UNK
  8. JANUVIA [Concomitant]
     Active Substance: SITAGLIPTIN PHOSPHATE
     Dosage: UNK
  9. HYDROCODONE BITARTRATE AND ACETAMINOPHEN [Concomitant]
     Active Substance: ACETAMINOPHEN\HYDROCODONE BITARTRATE
     Dosage: UNK
  10. ESCITALOPRAM OXALATE [Concomitant]
     Active Substance: ESCITALOPRAM OXALATE
     Dosage: UNK
  11. PROBIOTICS NOS [Concomitant]
     Active Substance: PROBIOTICS NOS
  12. CRESTOR [Concomitant]
     Active Substance: ROSUVASTATIN CALCIUM
  13. PLAVIX [Concomitant]
     Active Substance: CLOPIDOGREL BISULFATE

REACTIONS (2)
  - Cerebral haemorrhage [Recovering/Resolving]
  - Stomatitis [Recovered/Resolved]

NARRATIVE: CASE EVENT DATE: 20210710
